FAERS Safety Report 9254482 (Version 1)
Quarter: 2013Q2

REPORT INFORMATION
  Report Type: Spontaneous
  Country: CN (occurrence: CN)
  Receive Date: 20130425
  Receipt Date: 20130425
  Transmission Date: 20140414
  Serious: Yes (Hospitalization)
  Sender: FDA-Public Use
  Company Number: CN-BRISTOL-MYERS SQUIBB COMPANY-17415050

PATIENT
  Age: 40 Year
  Sex: Male
  Weight: 70 kg

DRUGS (1)
  1. BARACLUDE [Suspect]
     Indication: HEPATIC CIRRHOSIS
     Dates: start: 20120410

REACTIONS (1)
  - Blood creatine phosphokinase increased [Not Recovered/Not Resolved]
